FAERS Safety Report 11298075 (Version 1)
Quarter: 2015Q3

REPORT INFORMATION
  Report Type: Spontaneous
  Country: US (occurrence: US)
  Receive Date: 20150722
  Receipt Date: 20150722
  Transmission Date: 20151125
  Serious: Yes (Other)
  Sender: FDA-Public Use
  Company Number: US-ELI_LILLY_AND_COMPANY-US201104003586

PATIENT
  Sex: Male
  Weight: 77.1 kg

DRUGS (2)
  1. EFFIENT [Suspect]
     Active Substance: PRASUGREL HYDROCHLORIDE
     Indication: THROMBOSIS IN DEVICE
     Dosage: 10 MG, UNKNOWN
     Route: 048
     Dates: start: 201008
  2. ASPIRIN. [Concomitant]
     Active Substance: ASPIRIN
     Dosage: 325 MG, UNK
     Dates: start: 2010

REACTIONS (3)
  - Haemorrhage [Recovering/Resolving]
  - Epistaxis [Recovering/Resolving]
  - Upper respiratory tract infection [Unknown]
